FAERS Safety Report 15561689 (Version 1)
Quarter: 2018Q4

REPORT INFORMATION
  Report Type: Report from Study
  Country: IT (occurrence: IT)
  Receive Date: 20181029
  Receipt Date: 20181029
  Transmission Date: 20190205
  Serious: Yes (Hospitalization)
  Sender: FDA-Public Use
  Company Number: IT-PFIZER INC-2018434729

PATIENT
  Age: 80 Year
  Sex: Female

DRUGS (1)
  1. XANAX [Suspect]
     Active Substance: ALPRAZOLAM
     Indication: PLASMA CELL MYELOMA
     Dosage: 0.75 MG/ML TOTAL
     Route: 048
     Dates: start: 20181010, end: 20181010

REACTIONS (2)
  - Medication error [Unknown]
  - Sopor [Recovering/Resolving]

NARRATIVE: CASE EVENT DATE: 20181010
